FAERS Safety Report 15599752 (Version 1)
Quarter: 2018Q4

REPORT INFORMATION
  Report Type: Report from Study
  Country: US (occurrence: US)
  Receive Date: 20181108
  Receipt Date: 20181108
  Transmission Date: 20190205
  Serious: Yes (Other)
  Sender: FDA-Public Use
  Company Number: US-SHIRE-US201842011

PATIENT
  Sex: Female

DRUGS (1)
  1. CINRYZE [Suspect]
     Active Substance: HUMAN C1-ESTERASE INHIBITOR
     Indication: IMMUNE SYSTEM DISORDER
     Dosage: 1000 IU, 3X A WEEK
     Route: 042
     Dates: start: 20181024

REACTIONS (3)
  - Inappropriate schedule of product administration [Unknown]
  - Hospitalisation [Unknown]
  - Device related thrombosis [Unknown]
